FAERS Safety Report 9451121 (Version 1)
Quarter: 2013Q3

REPORT INFORMATION
  Report Type: Spontaneous
  Country: US (occurrence: US)
  Receive Date: 20130809
  Receipt Date: 20130809
  Transmission Date: 20140515
  Serious: Yes (Hospitalization)
  Sender: FDA-Public Use
  Company Number: US-PFIZER INC-2013229444

PATIENT
  Age: 68 Year
  Sex: Male

DRUGS (6)
  1. RAMIPRIL [Suspect]
     Dosage: UNK
  2. METFORMIN HCL [Suspect]
     Indication: TYPE 2 DIABETES MELLITUS
     Dosage: 1000 MG, UNK
     Dates: end: 20111201
  3. COREG [Suspect]
     Dosage: UNK
  4. SAXAGLIPTIN HYDROCHLORIDE [Suspect]
     Indication: TYPE 2 DIABETES MELLITUS
     Dosage: UNK, DAILY
     Route: 065
     Dates: start: 20110826, end: 20121101
  5. NIACIN [Concomitant]
     Dosage: UNK
     Dates: start: 20110826
  6. ASPIRIN [Concomitant]
     Dosage: UNK

REACTIONS (2)
  - Hypotension [Recovering/Resolving]
  - Vomiting [Recovered/Resolved]
